FAERS Safety Report 7293774-6 (Version None)
Quarter: 2011Q1

REPORT INFORMATION
  Report Type: 
  Country: None (occurrence: None)
  Receive Date: 20110215
  Receipt Date: 20110211
  Transmission Date: 20110831
  Serious: Yes (Other)
  Sender: FDA-Public Use
  Company Number: US-PFIZER INC-2011031426

PATIENT
  Sex: Female
  Weight: 65.76 kg

DRUGS (8)
  1. LIPITOR [Suspect]
     Indication: TRANSIENT ISCHAEMIC ATTACK
     Dosage: 80 MG, 1X/DAY
     Route: 048
     Dates: start: 20060101
  2. SPIRONOLACTONE [Concomitant]
     Indication: GENERALISED OEDEMA
     Dosage: 25 MG, 1X/DAY
  3. FISH OIL [Concomitant]
     Indication: SUPPLEMENTATION THERAPY
     Dosage: UNK
  4. PLAVIX [Concomitant]
     Indication: TRANSIENT ISCHAEMIC ATTACK
     Dosage: UNK
  5. COMBIGAN [Concomitant]
     Indication: GLAUCOMA
     Dosage: UNK
  6. LEVOXYL [Concomitant]
     Indication: HYPERTHYROIDISM
     Dosage: 50 UG, 1X/DAY
  7. ACCUPRIL [Concomitant]
     Indication: HEART VALVE INCOMPETENCE
     Dosage: 5 MG, 1X/DAY
  8. LIPITOR [Suspect]
     Dosage: 20 MG, 1X/DAY
     Dates: end: 20110210

REACTIONS (1)
  - MUSCLE DISORDER [None]
